FAERS Safety Report 12606552 (Version 1)
Quarter: 2016Q3

REPORT INFORMATION
  Report Type: Spontaneous
  Country: NL (occurrence: NL)
  Receive Date: 20160729
  Receipt Date: 20160729
  Transmission Date: 20161109
  Serious: Yes (Other)
  Sender: FDA-Public Use
  Company Number: NL-TEVA-679176ISR

PATIENT
  Age: 2 Decade
  Sex: Female

DRUGS (5)
  1. HYDROCORTISONE. [Suspect]
     Active Substance: HYDROCORTISONE
     Indication: ECZEMA
     Dosage: 0.05 MG/G
     Route: 061
  2. FLUTICASONE PROPIONATE. [Suspect]
     Active Substance: FLUTICASONE PROPIONATE
     Indication: ECZEMA
     Dosage: 0.05 MG/G
     Route: 061
  3. HYDROXYZINE [Concomitant]
     Active Substance: HYDROXYZINE\HYDROXYZINE HYDROCHLORIDE
     Route: 065
  4. CLOBETASOL [Suspect]
     Active Substance: CLOBETASOL
     Indication: ECZEMA
     Dosage: 0.05 MG/G
     Route: 061
  5. CLEMASTINE [Concomitant]
     Active Substance: CLEMASTINE
     Route: 065

REACTIONS (2)
  - Drug dependence [Unknown]
  - Steroid withdrawal syndrome [Recovered/Resolved with Sequelae]
